FAERS Safety Report 10332338 (Version 2)
Quarter: 2014Q3

REPORT INFORMATION
  Report Type: Spontaneous
  Country: US (occurrence: US)
  Receive Date: 20140722
  Receipt Date: 20140924
  Transmission Date: 20150326
  Serious: No
  Sender: FDA-Public Use
  Company Number: US-ASTRAZENECA-2014SE22734

PATIENT
  Age: 73 Year
  Sex: Male
  Weight: 90.7 kg

DRUGS (17)
  1. PLAVIX [Concomitant]
     Active Substance: CLOPIDOGREL BISULFATE
  2. FAMOTADINE [Concomitant]
  3. SEROQUEL XR [Suspect]
     Active Substance: QUETIAPINE FUMARATE
     Indication: BIPOLAR DISORDER
     Route: 048
     Dates: start: 201402, end: 20140328
  4. SOTALOL. [Concomitant]
     Active Substance: SOTALOL
     Indication: ATRIAL FIBRILLATION
     Route: 048
     Dates: start: 2013
  5. AMIODARONE [Concomitant]
     Active Substance: AMIODARONE
  6. FIBER [Concomitant]
     Active Substance: PSYLLIUM HUSK
  7. SINGULAIR [Concomitant]
     Active Substance: MONTELUKAST SODIUM
  8. COLACE [Concomitant]
     Active Substance: DOCUSATE SODIUM
  9. ASA [Concomitant]
     Active Substance: ASPIRIN
  10. TOPROL XL [Suspect]
     Active Substance: METOPROLOL SUCCINATE
     Route: 048
  11. XANAX [Concomitant]
     Active Substance: ALPRAZOLAM
  12. NITROSTAT [Concomitant]
     Active Substance: NITROGLYCERIN
  13. SEROQUEL XR [Suspect]
     Active Substance: QUETIAPINE FUMARATE
     Indication: BIPOLAR DISORDER
     Route: 048
  14. SEROQUEL XR [Suspect]
     Active Substance: QUETIAPINE FUMARATE
     Indication: BIPOLAR DISORDER
     Route: 048
  15. WARFARIN [Concomitant]
     Active Substance: WARFARIN
  16. SPIRIVA [Concomitant]
     Active Substance: TIOTROPIUM BROMIDE MONOHYDRATE
  17. MONTELUKAST [Concomitant]
     Active Substance: MONTELUKAST SODIUM
     Indication: CARDIAC DISORDER
     Route: 048

REACTIONS (7)
  - Dry mouth [Unknown]
  - Tardive dyskinesia [Not Recovered/Not Resolved]
  - Hypokinesia [Unknown]
  - Abdominal pain upper [Unknown]
  - Intentional product misuse [Unknown]
  - Anxiety [Unknown]
  - Fatigue [Unknown]

NARRATIVE: CASE EVENT DATE: 201402
